FAERS Safety Report 4925255-6 (Version None)
Quarter: 2006Q1

REPORT INFORMATION
  Report Type: 
  Country: None (occurrence: None)
  Receive Date: 20060228
  Receipt Date: 20060220
  Transmission Date: 20060701
  Serious: Yes (Other)
  Sender: FDA-Public Use
  Company Number: EMADSS2003003737

PATIENT
  Sex: Male

DRUGS (6)
  1. REMICADE [Suspect]
     Route: 041
  2. REMICADE [Suspect]
     Route: 041
  3. MAREVAN [Suspect]
     Indication: AORTIC VALVE REPLACEMENT
     Route: 048
  4. PREDNISOLONE [Concomitant]
     Indication: ARTHRITIS
     Route: 048
  5. BARCAN [Concomitant]
     Indication: ARTHRITIS
     Route: 048
  6. LOSEC MUPS [Concomitant]
     Indication: DYSPEPSIA
     Route: 048

REACTIONS (1)
  - SUBARACHNOID HAEMORRHAGE [None]
